FAERS Safety Report 19588692 (Version 1)
Quarter: 2021Q3

REPORT INFORMATION
  Report Type: Spontaneous
  Country: US (occurrence: US)
  Receive Date: 20210721
  Receipt Date: 20210721
  Transmission Date: 20211014
  Serious: Yes (Disabling, Other)
  Sender: FDA-Public Use
  Company Number: US-SA-2021SA226557

PATIENT
  Sex: Female

DRUGS (1)
  1. LANTUS SOLOSTAR [Suspect]
     Active Substance: INSULIN GLARGINE
     Indication: TYPE 2 DIABETES MELLITUS
     Dosage: 70 IU, QD
     Route: 065

REACTIONS (7)
  - Cough [Unknown]
  - Device issue [Unknown]
  - Deafness [Unknown]
  - Blood glucose fluctuation [Unknown]
  - Mental impairment [Unknown]
  - Blindness unilateral [Unknown]
  - Cataract [Unknown]
